FAERS Safety Report 14527622 (Version 2)
Quarter: 2018Q1

REPORT INFORMATION
  Report Type: Spontaneous
  Country: US (occurrence: US)
  Receive Date: 20180213
  Receipt Date: 20180329
  Transmission Date: 20180509
  Serious: Yes (Other)
  Sender: FDA-Public Use
  Company Number: US-GILEAD-2018-0319318

PATIENT
  Age: 54 Year
  Sex: Male
  Weight: 85.71 kg

DRUGS (5)
  1. SOVALDI [Suspect]
     Active Substance: SOFOSBUVIR
     Indication: HEPATITIS C
     Dosage: 400 MG, QD
     Route: 048
     Dates: start: 20160211, end: 20160505
  2. RIBAVIRIN. [Suspect]
     Active Substance: RIBAVIRIN
     Indication: HEPATITIS C
     Dosage: 600 MG, BID
     Route: 048
     Dates: start: 20160211, end: 20160505
  3. SOVALDI [Suspect]
     Active Substance: SOFOSBUVIR
     Dosage: 400 MG, QD
     Route: 048
     Dates: start: 20141204, end: 20150521
  4. RIBAVIRIN. [Suspect]
     Active Substance: RIBAVIRIN
     Dosage: 600 MG, BID
     Route: 048
     Dates: start: 20141204, end: 20150521
  5. PEGINTERFERON ALFA-2A. [Suspect]
     Active Substance: PEGINTERFERON ALFA-2A
     Indication: HEPATITIS C
     Dosage: 180 MG, Q1WK
     Route: 058
     Dates: start: 20160211, end: 20160505

REACTIONS (2)
  - Hepatic cirrhosis [Unknown]
  - Drug ineffective [Not Recovered/Not Resolved]
